FAERS Safety Report 8344053-7 (Version None)
Quarter: 2012Q2

REPORT INFORMATION
  Report Type: 
  Country: None (occurrence: None)
  Receive Date: 20120508
  Receipt Date: 20120507
  Transmission Date: 20120825
  Serious: Yes (Other)
  Sender: FDA-Public Use
  Company Number: CN-BAYER-2012-043979

PATIENT
  Age: 74 Year
  Sex: Male

DRUGS (3)
  1. GLIMEPIRIDE [Concomitant]
  2. GLUCOBAY [Suspect]
     Indication: TYPE 2 DIABETES MELLITUS
     Dosage: UNK
     Route: 048
     Dates: start: 20110801
  3. METFORMIN HCL [Concomitant]

REACTIONS (4)
  - FAECES DISCOLOURED [None]
  - FLATULENCE [None]
  - GASTRITIS [None]
  - DUODENAL ULCER [None]
